FAERS Safety Report 6659398-6 (Version None)
Quarter: 2010Q1

REPORT INFORMATION
  Report Type: 
  Country: None (occurrence: None)
  Receive Date: 20100330
  Receipt Date: 20100322
  Transmission Date: 20100710
  Serious: No
  Sender: FDA-Public Use
  Company Number: US-BIOGENIDEC-2010BI009876

PATIENT
  Age: 54 Year
  Sex: Male

DRUGS (1)
  1. TYSABRI [Suspect]
     Indication: MULTIPLE SCLEROSIS
     Route: 042
     Dates: start: 20091002

REACTIONS (5)
  - DEPRESSION [None]
  - DIPLOPIA [None]
  - DYSPHONIA [None]
  - EXTRAOCULAR MUSCLE PARESIS [None]
  - MULTIPLE SCLEROSIS RELAPSE [None]
